FAERS Safety Report 8734955 (Version 2)
Quarter: 2012Q4

REPORT INFORMATION
  Report Type: 
  Country: US (occurrence: US)
  Receive Date: 20120821
  Receipt Date: 20121010
  Transmission Date: 20130627
  Serious: Yes (Disabling, Other)
  Sender: FDA-Public Use
  Company Number: US-FRI-1000037883

PATIENT
  Age: 70 Year
  Sex: Male

DRUGS (1)
  1. DALIRESP [Suspect]
     Indication: CHRONIC OBSTRUCTIVE PULMONARY DISEASE
     Dosage: 500 mcg
     Route: 048
     Dates: start: 20120425, end: 20120501

REACTIONS (8)
  - Diarrhoea [Recovered/Resolved]
  - Insomnia [Recovering/Resolving]
  - Skin lesion [Recovered/Resolved]
  - Vasculitis [Recovering/Resolving]
  - Arthralgia [Not Recovered/Not Resolved]
  - Arthralgia [Not Recovered/Not Resolved]
  - Spinal pain [Not Recovered/Not Resolved]
  - Autoimmune disorder [Not Recovered/Not Resolved]
